FAERS Safety Report 25956183 (Version 1)
Quarter: 2025Q4

REPORT INFORMATION
  Report Type: Spontaneous
  Country: US (occurrence: US)
  Receive Date: 20251024
  Receipt Date: 20251024
  Transmission Date: 20260117
  Serious: Yes (Other)
  Sender: CELLTRION
  Company Number: US-CELLTRION INC.-2024US027769

PATIENT

DRUGS (1)
  1. INFLECTRA [Suspect]
     Active Substance: INFLIXIMAB-DYYB
     Indication: Crohn^s disease

REACTIONS (4)
  - Adverse drug reaction [Unknown]
  - Drug specific antibody present [Unknown]
  - Treatment delayed [Unknown]
  - Product substitution issue [Unknown]
